FAERS Safety Report 8199236-6 (Version None)
Quarter: 2012Q1

REPORT INFORMATION
  Report Type: 
  Country: None (occurrence: None)
  Receive Date: 20120309
  Receipt Date: 20120227
  Transmission Date: 20120608
  Serious: Yes (Hospitalization)
  Sender: FDA-Public Use
  Company Number: US-ELI_LILLY_AND_COMPANY-US201202008061

PATIENT
  Age: 67 Year
  Sex: Female

DRUGS (2)
  1. OLANZAPINE [Suspect]
     Dosage: 2.5 MG, AT BEDTIME
  2. GABAPENTIN [Concomitant]
     Dosage: 600 MG, BID

REACTIONS (6)
  - BLOOD UREA INCREASED [None]
  - FALL [None]
  - BLOOD CREATININE INCREASED [None]
  - BODY TEMPERATURE INCREASED [None]
  - MYOCLONUS [None]
  - WHITE BLOOD CELL COUNT INCREASED [None]
